FAERS Safety Report 19920574 (Version 1)
Quarter: 2021Q4

REPORT INFORMATION
  Report Type: Report from Study
  Country: MX (occurrence: MX)
  Receive Date: 20211005
  Receipt Date: 20211005
  Transmission Date: 20220304
  Serious: Yes (Other)
  Sender: FDA-Public Use
  Company Number: MX-NOVARTISPH-NVSC2021MX036695

PATIENT
  Age: 4 Year
  Sex: Female
  Weight: 19 kg

DRUGS (4)
  1. CYCLOSPORINE [Suspect]
     Active Substance: CYCLOSPORINE
     Indication: Focal segmental glomerulosclerosis
     Dosage: 0.2 ML, QD (100 MG /50 ML)
     Route: 048
     Dates: start: 202002
  2. CYCLOSPORINE [Suspect]
     Active Substance: CYCLOSPORINE
     Dosage: 0.3 ML, QD (100 MG /50 ML)
     Route: 048
     Dates: start: 202002
  3. CYCLOSPORINE [Suspect]
     Active Substance: CYCLOSPORINE
     Dosage: 0.4 ML, QD (100 MG /50 ML)
     Route: 048
     Dates: start: 20210906
  4. GLIOTEN [Concomitant]
     Indication: Prophylaxis
     Dosage: 2.5 MG
     Route: 048
     Dates: start: 202002

REACTIONS (3)
  - Disease progression [Unknown]
  - Proteinuria [Not Recovered/Not Resolved]
  - Product use issue [Unknown]

NARRATIVE: CASE EVENT DATE: 20200201
